FAERS Safety Report 6264432-1 (Version None)
Quarter: 2009Q3

REPORT INFORMATION
  Report Type: 
  Country: None (occurrence: None)
  Receive Date: 20090710
  Receipt Date: 20090706
  Transmission Date: 20100115
  Serious: Yes (Other)
  Sender: FDA-Public Use
  Company Number: D0062195A

PATIENT
  Age: 71 Year
  Sex: Female
  Weight: 70 kg

DRUGS (2)
  1. MALARONE [Suspect]
     Indication: MALARIA PROPHYLAXIS
     Route: 048
     Dates: start: 20070318, end: 20070409
  2. COAPROVEL [Concomitant]
     Indication: HYPERTENSION
     Route: 048
     Dates: end: 20070301

REACTIONS (1)
  - LICHEN SCLEROSUS [None]
